FAERS Safety Report 22996748 (Version 7)
Quarter: 2024Q4

REPORT INFORMATION
  Report Type: Spontaneous
  Country: FR (occurrence: FR)
  Receive Date: 20230928
  Receipt Date: 20241031
  Transmission Date: 20250114
  Serious: Yes (Hospitalization, Other)
  Sender: SANDOZ
  Company Number: None

PATIENT
  Age: 59 Year
  Sex: Female

DRUGS (24)
  1. DIPRIVAN [Suspect]
     Active Substance: PROPOFOL
     Dosage: UNK (POSOLOGIE NON COMMUNIQU?E)
     Route: 040
     Dates: start: 20230522, end: 20230522
  2. DIPRIVAN [Suspect]
     Active Substance: PROPOFOL
     Indication: Anaesthesia
     Dosage: UNK (POSOLOGIE NON COMMUNIQUEE)
     Route: 042
     Dates: start: 20230522, end: 20230522
  3. ANAPEINE [Suspect]
     Active Substance: ROPIVACAINE HYDROCHLORIDE
     Indication: Anaesthesia
     Dosage: UNK (POSOLOGIE NON COMMUNIQUEE)
     Route: 042
     Dates: start: 20230522, end: 20230522
  4. ACUPAN [Suspect]
     Active Substance: NEFOPAM HYDROCHLORIDE
     Indication: Pain prophylaxis
     Dosage: UNK (POSOLOGIE NON COMMUNIQUEE)
     Route: 042
     Dates: start: 20230522, end: 20230523
  5. ATRACURIUM [Suspect]
     Active Substance: ATRACURIUM
     Indication: Anaesthesia
     Dosage: UNK (POSOLOGIE NON COMMUNIQUEE)
     Route: 042
     Dates: start: 20230522, end: 20230522
  6. CEFAZOLIN [Suspect]
     Active Substance: CEFAZOLIN
     Indication: Antibiotic prophylaxis
     Dosage: UNK (POSOLOGIE NON COMMUNIQUEE)
     Route: 042
     Dates: start: 20230522, end: 20230522
  7. DECADRON (DEXAMETHASONE SODIUM PHOSPHATE) [Suspect]
     Active Substance: DEXAMETHASONE SODIUM PHOSPHATE
     Indication: Prophylaxis of nausea and vomiting
     Dosage: UNK, POSOLOGIE NON COMMUNIQU?E
     Route: 042
     Dates: start: 20230522, end: 20230522
  8. DEXAMETHASONE [Suspect]
     Active Substance: DEXAMETHASONE
     Indication: Prophylaxis of nausea and vomiting
     Dosage: UNK (POSOLOGIE NON COMMUNIQUEE)
     Route: 042
     Dates: start: 20230522, end: 20230522
  9. KETAMINE [Suspect]
     Active Substance: KETAMINE
     Dosage: UNK (POSOLOGIE NON COMMUNIQU?E  )
     Route: 040
     Dates: start: 20230522, end: 20230522
  10. KETAMINE [Suspect]
     Active Substance: KETAMINE
     Indication: Anaesthesia
     Dosage: UNK (POSOLOGIE NON COMMUNIQUEE)
     Route: 042
     Dates: start: 20230522, end: 20230522
  11. LOVENOX [Suspect]
     Active Substance: ENOXAPARIN SODIUM
     Indication: Thrombosis prophylaxis
     Dosage: UNK (POSOLOGIE NON COMMUNIQUEE)
     Route: 058
     Dates: start: 20230522, end: 20230601
  12. LOXOPROFEN SODIUM DIHYDRATE [Suspect]
     Active Substance: LOXOPROFEN SODIUM DIHYDRATE
     Indication: Hypertension
     Dosage: UNK (POSOLOGIE NON COMMUNIQUEE)
     Route: 042
     Dates: start: 20230523, end: 20230524
  13. NICARDIPINE HYDROCHLORIDE [Suspect]
     Active Substance: NICARDIPINE HYDROCHLORIDE
     Indication: Hypertension
     Dosage: POSOLOGIE NON COMMUNIQU?E
     Route: 042
     Dates: start: 20230523, end: 20230524
  14. ONDANSETRON [Suspect]
     Active Substance: ONDANSETRON
     Indication: Antiemetic supportive care
     Dosage: UNK (POSOLOGIE NON COMMUNIQUEE)
     Route: 042
     Dates: start: 20230523, end: 20230524
  15. PANTOPRAZOLE [Suspect]
     Active Substance: PANTOPRAZOLE
     Indication: Gastritis prophylaxis
     Dosage: UNK (POSOLOGIE NON COMMUNIQUEE)
     Route: 042
     Dates: start: 20230522, end: 20230530
  16. ACETAMINOPHEN [Suspect]
     Active Substance: ACETAMINOPHEN
     Indication: Antibiotic prophylaxis
     Dosage: UNK
     Route: 042
     Dates: start: 20230522, end: 20230525
  17. PERFALGAN [Suspect]
     Active Substance: ACETAMINOPHEN
     Indication: Antibiotic prophylaxis
     Dosage: UNK (POSOLOGIE NON COMMUNIQUEE)
     Route: 042
     Dates: start: 20230522, end: 20230525
  18. PHLOROGLUCINOL [Suspect]
     Active Substance: PHLOROGLUCINOL
     Indication: Abdominal pain
     Dosage: UNK
     Route: 042
     Dates: start: 20230523, end: 20230525
  19. SEVOFLURANE [Suspect]
     Active Substance: SEVOFLURANE
     Indication: Anaesthesia
     Dosage: UNK (POSOLOGIE NON COMMUNIQUEE)
     Route: 042
     Dates: start: 20230522, end: 20230522
  20. PHLOROGLUCINOL [Suspect]
     Active Substance: PHLOROGLUCINOL
     Indication: Abdominal pain
     Dosage: UNK (POSOLOGIE NON COMMUNIQUEE)
     Route: 042
     Dates: start: 20230523, end: 20230525
  21. SUFENTANIL [Suspect]
     Active Substance: SUFENTANIL
     Indication: Anaesthesia
     Dosage: UNK (POSOLOGIE NON COMMUNIQU?E)
     Route: 040
     Dates: start: 20230522, end: 20230522
  22. SUFENTANIL [Suspect]
     Active Substance: SUFENTANIL
     Indication: Anaesthesia
     Dosage: UNK (POSOLOGIE NON COMMUNIQUEE)
     Route: 042
     Dates: start: 20230522, end: 20230522
  23. TRAMADOL HYDROCHLORIDE [Suspect]
     Active Substance: TRAMADOL HYDROCHLORIDE
     Indication: Pain prophylaxis
     Dosage: UNK (AMPOULE, POSOLOGIE NON COMMUNIQUEE)
     Route: 042
     Dates: start: 20230522, end: 20230522
  24. ULTRAVIST [Suspect]
     Active Substance: IOPROMIDE
     Indication: Imaging procedure
     Dosage: 370 (370 MG D^IODE/ML) SOLUTION INJECTABLE
     Route: 042
     Dates: start: 20230524, end: 20230524

REACTIONS (1)
  - Acute generalised exanthematous pustulosis [Recovered/Resolved]

NARRATIVE: CASE EVENT DATE: 20230525
